FAERS Safety Report 10228057 (Version 1)
Quarter: 2014Q2

REPORT INFORMATION
  Report Type: Spontaneous
  Country: US (occurrence: None)
  Receive Date: 20140609
  Receipt Date: 20140609
  Transmission Date: 20141212
  Serious: No
  Sender: FDA-Public Use
  Company Number: None

PATIENT
  Age: 28 Year
  Sex: Male
  Weight: 65.77 kg

DRUGS (1)
  1. CIPROFLAXIN [Suspect]
     Indication: URINARY TRACT INFECTION
     Dosage: 1 PILL TWICE DAILY TAKEN BY MOUTH
     Route: 048
     Dates: start: 20140603, end: 20140605

REACTIONS (7)
  - Myalgia [None]
  - Arthralgia [None]
  - Arthralgia [None]
  - Musculoskeletal stiffness [None]
  - Joint crepitation [None]
  - Gait disturbance [None]
  - Product quality issue [None]
